FAERS Safety Report 4657648-9 (Version None)
Quarter: 2005Q2

REPORT INFORMATION
  Report Type: 
  Country: None (occurrence: None)
  Receive Date: 20050404
  Receipt Date: 20050321
  Transmission Date: 20051028
  Serious: No
  Sender: FDA-Public Use
  Company Number: 2005UW01423

PATIENT
  Age: 72 Year
  Sex: Male
  Weight: 87.0906 kg

DRUGS (5)
  1. CRESTOR [Suspect]
     Indication: DYSLIPIDAEMIA
     Dosage: 10 MG DAILY PO
     Route: 048
     Dates: start: 20041020, end: 20041119
  2. TRIAMTERENE AND HYDROCHLOROTHIAZIDE [Concomitant]
  3. PREVACID [Concomitant]
  4. NIASPAN [Concomitant]
  5. METROGEL [Concomitant]

REACTIONS (3)
  - HEPATITIS [None]
  - JAUNDICE [None]
  - RENAL FAILURE [None]
